FAERS Safety Report 6247618-1 (Version None)
Quarter: 2009Q2

REPORT INFORMATION
  Report Type: 
  Country: None (occurrence: None)
  Receive Date: 20090626
  Receipt Date: 20090622
  Transmission Date: 20091009
  Serious: Yes (Life-Threatening, Hospitalization)
  Sender: FDA-Public Use
  Company Number: JP-ABBOTT-09P-087-0573338-00

PATIENT
  Sex: Female

DRUGS (11)
  1. HUMIRA [Suspect]
     Indication: RHEUMATOID ARTHRITIS
     Route: 058
     Dates: start: 20090226, end: 20090226
  2. PREDNISOLONE [Concomitant]
     Indication: RHEUMATOID ARTHRITIS
     Route: 048
     Dates: start: 20041027
  3. ETODOLAC [Concomitant]
     Indication: RHEUMATOID ARTHRITIS
     Route: 048
     Dates: start: 20041027, end: 20090309
  4. SOFALCONE [Concomitant]
     Indication: PROPHYLAXIS
     Dosage: 0.5G DAILY
     Route: 048
     Dates: start: 20041027, end: 20090309
  5. ALFACALCIDOL [Concomitant]
     Indication: PROPHYLAXIS
     Dosage: 0.5UG DAILY
     Route: 048
     Dates: start: 20041027, end: 20090309
  6. LANSOPRAZOLE [Concomitant]
     Indication: PROPHYLAXIS
     Dosage: DAILY
     Route: 048
     Dates: start: 20090210
  7. METHOTREXATE [Concomitant]
     Indication: RHEUMATOID ARTHRITIS
     Route: 048
     Dates: start: 20040602, end: 20090309
  8. FOLIC ACID [Concomitant]
     Indication: PROPHYLAXIS
     Route: 048
     Dates: start: 20050510, end: 20090309
  9. DICLOFENAC SODIUM [Concomitant]
     Indication: RHEUMATOID ARTHRITIS
     Dates: start: 20050525, end: 20090309
  10. SODIUM RISEDRONATE HYDRATE [Concomitant]
     Indication: PROPHYLAXIS
     Route: 048
     Dates: start: 20080918
  11. FLURBIPROFEN [Concomitant]
     Indication: RHEUMATOID ARTHRITIS
     Dosage: ROUTE: AP
     Dates: start: 20060926

REACTIONS (7)
  - DEPRESSION [None]
  - HEADACHE [None]
  - HYPOPHAGIA [None]
  - MENTAL STATUS CHANGES [None]
  - NAUSEA [None]
  - RUPTURED CEREBRAL ANEURYSM [None]
  - VOMITING [None]
